FAERS Safety Report 11899772 (Version 2)
Quarter: 2016Q1

REPORT INFORMATION
  Report Type: Spontaneous
  Country: US (occurrence: US)
  Receive Date: 20160108
  Receipt Date: 20160111
  Transmission Date: 20160526
  Serious: No
  Sender: FDA-Public Use
  Company Number: US-GLAXOSMITHKLINE-US2016GSK001997

PATIENT
  Sex: Female

DRUGS (1)
  1. TANZEUM [Suspect]
     Active Substance: ALBIGLUTIDE
     Indication: WEIGHT CONTROL
     Dosage: 30 MG, WE
     Route: 042
     Dates: start: 2015

REACTIONS (6)
  - Off label use [Unknown]
  - Device breakage [Unknown]
  - Drug dose omission [Unknown]
  - Device leakage [Unknown]
  - Device use error [Unknown]
  - Accidental exposure to product [Unknown]
